FAERS Safety Report 24413492 (Version 1)
Quarter: 2024Q4

REPORT INFORMATION
  Report Type: Spontaneous
  Country: GB (occurrence: GB)
  Receive Date: 20241008
  Receipt Date: 20241008
  Transmission Date: 20250115
  Serious: Yes (Other)
  Sender: TEVA
  Company Number: GB-MHRA-TPP6803948C6176768YC1727436412882

PATIENT
  Age: 69 Year
  Sex: Male
  Weight: 98 kg

DRUGS (6)
  1. METFORMIN [Suspect]
     Active Substance: METFORMIN HYDROCHLORIDE
     Indication: Ill-defined disorder
     Dosage: TPP YC - PLEASE RECLASSIFY
     Route: 065
     Dates: start: 20240206
  2. ATORVASTATIN [Concomitant]
     Active Substance: ATORVASTATIN
     Indication: Ill-defined disorder
     Dosage: TAKE ONE DAILY, TPP YC - PLEASE RECLASSIFY
     Route: 065
     Dates: start: 20231213
  3. GLICLAZIDE [Concomitant]
     Active Substance: GLICLAZIDE
     Indication: Ill-defined disorder
     Dosage: 1 BD, TPP YC - PLEASE RECLASSIFY
     Route: 065
     Dates: start: 20240425
  4. LANSOPRAZOLE [Concomitant]
     Active Substance: LANSOPRAZOLE
     Indication: Ill-defined disorder
     Dosage: TAKE ONE ONCE DAILY, TPP YC - PLEASE RECLASSIFY
     Route: 065
     Dates: start: 20231213
  5. LOSARTAN [Concomitant]
     Active Substance: LOSARTAN
     Indication: Ill-defined disorder
     Dosage: TAKE ONE DAILY, TPP YC - PLEASE RECLASSIFY
     Route: 065
     Dates: start: 20240510
  6. AMLODIPINE [Concomitant]
     Active Substance: AMLODIPINE BESYLATE
     Indication: Ill-defined disorder
     Dosage: TAKE ONE DAILY, TPP YC - PLEASE RECLASSIFY
     Route: 065
     Dates: start: 20231213

REACTIONS (2)
  - Swelling face [Recovered/Resolved]
  - Headache [Recovered/Resolved]

NARRATIVE: CASE EVENT DATE: 20240206
